FAERS Safety Report 8001871-2 (Version None)
Quarter: 2011Q4

REPORT INFORMATION
  Report Type: 
  Country: None (occurrence: None)
  Receive Date: 20111222
  Receipt Date: 20111214
  Transmission Date: 20120403
  Serious: Yes (Hospitalization)
  Sender: FDA-Public Use
  Company Number: CH-TEVA-314343ISR

PATIENT
  Age: 40 Year
  Sex: Male

DRUGS (3)
  1. ETOPOSIDE [Suspect]
     Dosage: (TOTAL DOSE 180 MG/D DAYS1-3 AND 170 MG/D DAYS4-5)
     Route: 051
     Dates: start: 20110818, end: 20110822
  2. BLEOMYCIN-TEVA [Suspect]
     Dosage: 30 MILLIGRAM;
     Route: 042
     Dates: start: 20110818, end: 20110818
  3. CISPLATIN [Suspect]
     Dosage: 20 MG/M2; DAYS 1-5 (TOTAL DOSE 35 MG/D)
     Route: 051
     Dates: start: 20110818, end: 20110822

REACTIONS (1)
  - FEBRILE NEUTROPENIA [None]
